FAERS Safety Report 7350668 (Version 16)
Quarter: 2021Q3

REPORT INFORMATION
  Report Type: Report from Study
  Country: CA (occurrence: CA)
  Receive Date: 20100409
  Receipt Date: 20210908
  Transmission Date: 20211014
  Serious: Yes (Hospitalization, Other)
  Sender: FDA-Public Use
  Company Number: PHHY2010CA19864

PATIENT
  Age: 43 Year
  Sex: Male

DRUGS (9)
  1. SANDOSTATIN LAR DEPOT [Suspect]
     Active Substance: OCTREOTIDE ACETATE
     Indication: ACROMEGALY
     Dosage: 30 MG,QMO (EVERY 4 WEEKS)
     Route: 030
     Dates: start: 20070629
  2. SOMAVERT [Concomitant]
     Active Substance: PEGVISOMANT
     Indication: PRODUCT USED FOR UNKNOWN INDICATION
     Dosage: UNK (STRENGTH 30 MG)
     Route: 065
     Dates: start: 2008
  3. SOMAVERT [Concomitant]
     Active Substance: PEGVISOMANT
     Dosage: UNK UNK, QMO (STRENGTH 20 MG)
     Route: 065
     Dates: end: 2008
  4. SOMAVERT [Concomitant]
     Active Substance: PEGVISOMANT
     Dosage: 1 UNK, QD (STRENGTH 70 MG)
     Route: 058
     Dates: start: 2020
  5. SANDOSTATIN LAR DEPOT [Suspect]
     Active Substance: OCTREOTIDE ACETATE
     Dosage: 20 MG, QMO
     Route: 030
  6. SANDOSTATIN LAR DEPOT [Suspect]
     Active Substance: OCTREOTIDE ACETATE
     Dosage: 30 MG, Q3W
     Route: 030
  7. SOMAVERT [Concomitant]
     Active Substance: PEGVISOMANT
     Dosage: 1 UNK, QD (STRNGTH 60 MG)
     Route: 058
     Dates: end: 2020
  8. SANDOSTATIN LAR DEPOT [Suspect]
     Active Substance: OCTREOTIDE ACETATE
     Dosage: 20 MG, QMO (EVERY 4 WEEKS)
     Route: 030
  9. SANDOSTATIN LAR DEPOT [Suspect]
     Active Substance: OCTREOTIDE ACETATE
     Dosage: 30 MG,QMO (EVERY 4 WEEKS)
     Route: 030
     Dates: start: 20130903

REACTIONS (17)
  - Neoplasm progression [Unknown]
  - Suicidal ideation [Unknown]
  - Balance disorder [Unknown]
  - Arthritis [Unknown]
  - Vomiting [Unknown]
  - Heart rate decreased [Unknown]
  - Headache [Unknown]
  - Ear discomfort [Unknown]
  - Cognitive disorder [Unknown]
  - Inappropriate schedule of product administration [Unknown]
  - Vertigo [Unknown]
  - Blindness [Unknown]
  - Delusion [Unknown]
  - Paranasal sinus hypersecretion [Unknown]
  - Blood pressure increased [Unknown]
  - Arthralgia [Unknown]
  - Heart rate increased [Unknown]

NARRATIVE: CASE EVENT DATE: 20120918
